FAERS Safety Report 5605183-3 (Version None)
Quarter: 2008Q1

REPORT INFORMATION
  Report Type: 
  Country: None (occurrence: None)
  Receive Date: 20080128
  Receipt Date: 20080122
  Transmission Date: 20080703
  Serious: Yes (Life-Threatening)
  Sender: FDA-Public Use
  Company Number: MY-PFIZER INC-2007102664

PATIENT
  Sex: Male
  Weight: 54 kg

DRUGS (6)
  1. SU-011,248 [Suspect]
     Indication: METASTATIC RENAL CELL CARCINOMA
     Route: 048
     Dates: start: 20061010, end: 20071204
  2. BISOPROLOL FUMARATE [Concomitant]
     Route: 048
  3. LIPITOR [Concomitant]
     Route: 048
  4. NORVASC [Concomitant]
     Route: 048
  5. GLUCOPHAGE [Concomitant]
     Route: 048
  6. PANTOPRAZOLE [Concomitant]
     Route: 048

REACTIONS (2)
  - CONGESTIVE CARDIOMYOPATHY [None]
  - MYOCARDIAL INFARCTION [None]
